FAERS Safety Report 12843567 (Version 2)
Quarter: 2016Q4

REPORT INFORMATION
  Report Type: Spontaneous
  Country: CH (occurrence: CH)
  Receive Date: 20161013
  Receipt Date: 20161019
  Transmission Date: 20170207
  Serious: Yes (Hospitalization, Other)
  Sender: FDA-Public Use
  Company Number: CH-PFIZER INC-2016466511

PATIENT
  Age: 81 Year
  Sex: Male

DRUGS (11)
  1. TEMESTA [Suspect]
     Active Substance: LORAZEPAM
     Dosage: 1 MG, 2X/DAY (1-0-1-0)
     Route: 048
  2. TRIATEC [Suspect]
     Active Substance: RAMIPRIL
     Dosage: 2.5 MG, DAILY (1/2-0-1/2-0)
     Route: 065
  3. PANTOZOL [Suspect]
     Active Substance: PANTOPRAZOLE SODIUM
     Dosage: 20 MG, DAILY (1-0-0-0)
     Route: 065
  4. HYDROMORPHONI HYDROCHLORIDUM STREULI [Suspect]
     Active Substance: HYDROMORPHONE HYDROCHLORIDE
     Indication: ARTHRALGIA
     Dosage: 10 ML, 4X/DAY
     Route: 065
  5. TOREM /01036501/ [Suspect]
     Active Substance: TORSEMIDE
     Dosage: 200 MG, DAILY  (1/4-0-0-0)
     Route: 048
  6. ASPIRIN CARDIO [Suspect]
     Active Substance: ASPIRIN
     Dosage: 100 MG, DAILY (1-0-0-0)
     Route: 065
  7. PLAVIX [Suspect]
     Active Substance: CLOPIDOGREL BISULFATE
     Dosage: 75 MG, DAILY (1-0-0-0)
     Route: 048
  8. INSULIN [Concomitant]
     Active Substance: INSULIN NOS
     Dosage: UNK, 2X/DAY
  9. CIRCADIN [Suspect]
     Active Substance: MELATONIN
     Dosage: 10 MG, DAILY
     Route: 048
  10. CIPRALEX [Suspect]
     Active Substance: ESCITALOPRAM OXALATE
     Dosage: 10 MG, DAILY (1-0-0-0)
     Route: 065
  11. HALDOL [Suspect]
     Active Substance: HALOPERIDOL
     Dosage: 5 GTT, 2X/DAY (1GTT= 2.0 MG/ML)
     Route: 065

REACTIONS (3)
  - Fall [Unknown]
  - Syncope [Unknown]
  - Haematoma [Unknown]

NARRATIVE: CASE EVENT DATE: 20160909
